FAERS Safety Report 8568552 (Version 4)
Quarter: 2013Q4

REPORT INFORMATION
  Report Type: Spontaneous
  Country: US (occurrence: US)
  Receive Date: 20120518
  Receipt Date: 20131029
  Transmission Date: 20140711
  Serious: Yes (Hospitalization)
  Sender: FDA-Public Use
  Company Number: US-UCBSA-057172

PATIENT
  Age: 61 Year
  Sex: Male

DRUGS (4)
  1. CIMZIA [Suspect]
     Indication: CROHN^S DISEASE
     Dates: start: 20111211
  2. CIMZIA [Suspect]
     Indication: CROHN^S DISEASE
     Dates: start: 20120908
  3. ZEPRO [Concomitant]
     Dates: end: 201203
  4. ZEPRO [Concomitant]
     Dates: start: 2012

REACTIONS (3)
  - Abscess [Recovered/Resolved]
  - Cholecystitis [Recovered/Resolved]
  - Inappropriate schedule of drug administration [Unknown]
